FAERS Safety Report 9631335 (Version 1)
Quarter: 2013Q4

REPORT INFORMATION
  Report Type: Spontaneous
  Country: US (occurrence: US)
  Receive Date: 20131018
  Receipt Date: 20131018
  Transmission Date: 20140711
  Serious: Yes (Hospitalization)
  Sender: FDA-Public Use
  Company Number: US-SA-2013SA105347

PATIENT
  Age: 76 Year
  Sex: Male

DRUGS (3)
  1. LANTUS SOLOSTAR [Suspect]
     Dosage: TAKEN FROM: 2 YEARS DOSE:20 UNIT(S)
     Route: 058
  2. HUMALOG [Suspect]
     Route: 065
  3. SOLOSTAR [Concomitant]

REACTIONS (5)
  - Cardiac disorder [Unknown]
  - Weight decreased [Unknown]
  - Night sweats [Unknown]
  - Blood glucose abnormal [Unknown]
  - Blood glucose increased [Unknown]
